FAERS Safety Report 4534476-6 (Version None)
Quarter: 2004Q4

REPORT INFORMATION
  Report Type: 
  Country: None (occurrence: None)
  Receive Date: 20041214
  Receipt Date: 20040824
  Transmission Date: 20050328
  Serious: No
  Sender: FDA-Public Use
  Company Number: USA040876355

PATIENT
  Age: 48 Year
  Sex: Male
  Weight: 86 kg

DRUGS (2)
  1. CIALIS [Suspect]
     Indication: ERECTILE DYSFUNCTION
     Dosage: 20 MG AS NEEDED
     Dates: start: 20040819
  2. GLYBURIDE W/METFORMIN HYDROCHLORIDE [Concomitant]

REACTIONS (2)
  - DYSPNOEA [None]
  - NASAL CONGESTION [None]
